APPROVED DRUG PRODUCT: AZACITIDINE
Active Ingredient: AZACITIDINE
Strength: 100MG/VIAL
Dosage Form/Route: POWDER;INTRAVENOUS, SUBCUTANEOUS
Application: N208216 | Product #001 | TE Code: AP
Applicant: ACTAVIS LLC
Approved: Apr 29, 2016 | RLD: No | RS: No | Type: RX